FAERS Safety Report 9998083 (Version 2)
Quarter: 2014Q1

REPORT INFORMATION
  Report Type: Report from Study
  Country: BD (occurrence: BD)
  Receive Date: 20140311
  Receipt Date: 20140312
  Transmission Date: 20141002
  Serious: Yes (Death, Other)
  Sender: FDA-Public Use
  Company Number: PHHY2014BD029440

PATIENT
  Age: 81 Year
  Sex: Female

DRUGS (2)
  1. ACLASTA [Suspect]
     Indication: OSTEOPOROSIS
     Dosage: UNK (ONCE YEARLY)
     Route: 042
     Dates: start: 20120417
  2. ANTIHYPERTENSIVE DRUGS [Concomitant]
     Dosage: UNK UKN, UNK

REACTIONS (3)
  - Asthma [Fatal]
  - Lung disorder [Fatal]
  - Diabetes mellitus [Not Recovered/Not Resolved]
